FAERS Safety Report 7046344-9 (Version None)
Quarter: 2010Q4

REPORT INFORMATION
  Report Type: 
  Country: None (occurrence: None)
  Receive Date: 20101014
  Receipt Date: 20101013
  Transmission Date: 20110411
  Serious: Yes (Hospitalization)
  Sender: FDA-Public Use
  Company Number: GXKR2009DE02693

PATIENT
  Age: 80 Year
  Sex: Female
  Weight: 95.7 kg

DRUGS (12)
  1. IMUREK                                  /GFR/ [Suspect]
     Indication: ARTERITIS
     Dosage: 50 MG, TID
     Route: 048
     Dates: start: 20081014, end: 20081111
  2. ALLOPURINOL [Interacting]
     Dosage: 100 MG, QD
     Route: 048
     Dates: end: 20081111
  3. BISOHEXAL (NGX) [Concomitant]
     Dosage: 10 MG, QD
     Route: 048
  4. LYRICA [Concomitant]
     Indication: PAIN
     Dosage: 75 MG, QD
     Route: 048
     Dates: start: 20081001
  5. CALCILAC KT [Concomitant]
     Indication: OSTEOPOROSIS PROPHYLAXIS
     Dosage: UNK
     Route: 048
     Dates: start: 20081001
  6. DELIX [Concomitant]
     Indication: HYPERTENSION
     Dosage: 2.5 MG, QD
     Route: 048
     Dates: start: 20080801
  7. FALITHROM ^HEXAL^ [Concomitant]
     Indication: ATRIAL FIBRILLATION
     Dosage: UNK
     Route: 048
     Dates: start: 20080801
  8. PANTOPRAZOLE SODIUM [Concomitant]
     Indication: PROPHYLAXIS AGAINST GASTROINTESTINAL ULCER
     Dosage: 40 MG, QD
     Route: 048
     Dates: start: 20081001
  9. RESTEX [Concomitant]
     Indication: RESTLESS LEGS SYNDROME
     Dosage: 25/100 MG DAILY
     Route: 048
     Dates: start: 20080801
  10. SIMVABETA [Concomitant]
     Indication: HYPERLIPIDAEMIA
     Dosage: 20 MG, QD
     Route: 048
  11. URBASON                                 /GFR/ [Concomitant]
     Indication: ARTERITIS
     Dosage: 60 MG, QD
     Route: 048
     Dates: start: 20080801
  12. XIPAMIDE [Concomitant]
     Indication: HYPERTENSION
     Dosage: 10 MG, QD
     Route: 048

REACTIONS (1)
  - PANCYTOPENIA [None]
